FAERS Safety Report 5504193-4 (Version None)
Quarter: 2007Q4

REPORT INFORMATION
  Report Type: 
  Country: None (occurrence: None)
  Receive Date: 20071101
  Receipt Date: 20071029
  Transmission Date: 20080405
  Serious: No
  Sender: FDA-Public Use
  Company Number: B0489256A

PATIENT
  Age: 55 Year
  Sex: Male
  Weight: 60.1 kg

DRUGS (6)
  1. ARIXTRA [Suspect]
     Indication: THROMBOSIS PROPHYLAXIS
     Dosage: 2.5MG PER DAY
     Route: 058
     Dates: start: 20070718, end: 20070801
  2. MEROPEN [Concomitant]
     Indication: INFECTION PROPHYLAXIS
     Dosage: 1G PER DAY
     Route: 042
     Dates: start: 20070723, end: 20070730
  3. LACTEC [Concomitant]
     Dosage: 1000ML PER DAY
     Route: 042
     Dates: start: 20070717, end: 20070726
  4. LOXOPROFEN [Concomitant]
     Route: 048
     Dates: start: 20070717
  5. MUCOSTA [Concomitant]
     Route: 048
     Dates: start: 20070717
  6. UNKNOWN DRUG [Concomitant]
     Route: 054
     Dates: start: 20070718

REACTIONS (1)
  - PLATELET COUNT INCREASED [None]
